FAERS Safety Report 19686049 (Version 1)
Quarter: 2021Q3

REPORT INFORMATION
  Report Type: Spontaneous
  Country: US (occurrence: US)
  Receive Date: 20210811
  Receipt Date: 20210811
  Transmission Date: 20211014
  Serious: No
  Sender: FDA-Public Use
  Company Number: US-PERRIGO-20US015413

PATIENT
  Age: 64 Year
  Sex: Female
  Weight: 92.97 kg

DRUGS (8)
  1. MAGNESIUM [Concomitant]
     Active Substance: MAGNESIUM
     Indication: ROUTINE HEALTH MAINTENANCE
     Dosage: 250 MG, UNKNOWN
     Route: 048
  2. ESTRADIOL. [Concomitant]
     Active Substance: ESTRADIOL
     Indication: OESTROGEN REPLACEMENT THERAPY
     Dosage: 0.75 MG, UNKNOWN
     Route: 061
  3. VITAMIN D3 [Concomitant]
     Active Substance: CHOLECALCIFEROL
     Indication: PROPHYLAXIS
     Dosage: 4000 IU, UNKNOWN
     Route: 048
     Dates: start: 202010
  4. POTASSIUM [Concomitant]
     Active Substance: POTASSIUM
     Indication: MUSCLE SPASMS
     Dosage: UNKNOWN, UNKNOWN
     Route: 048
  5. CALTRATE 600+D3 PLUS MINERALS      /07240601/ [Concomitant]
     Active Substance: CALCIUM\CHOLECALCIFEROL\MINERALS
     Indication: OSTEOPOROSIS PROPHYLAXIS
     Dosage: UNKNOWN, UNKNOWN
     Route: 048
  6. LORATADINE. [Suspect]
     Active Substance: LORATADINE
     Indication: HYPERSENSITIVITY
     Dosage: 10 MG, SINGLE
     Route: 048
     Dates: start: 20201001, end: 20201001
  7. LORATADINE. [Suspect]
     Active Substance: LORATADINE
     Indication: ASTHMA
     Dosage: 10 MG, SINGLE
     Route: 048
     Dates: start: 20201020, end: 20201020
  8. LORATADINE. [Suspect]
     Active Substance: LORATADINE
     Dosage: 10 MG, SINGLE
     Route: 048
     Dates: start: 20201022, end: 20201022

REACTIONS (2)
  - Somnolence [Not Recovered/Not Resolved]
  - Off label use [Recovered/Resolved]

NARRATIVE: CASE EVENT DATE: 20201001
